FAERS Safety Report 24178951 (Version 2)
Quarter: 2024Q4

REPORT INFORMATION
  Report Type: Report from Study
  Country: US (occurrence: US)
  Receive Date: 20240806
  Receipt Date: 20241031
  Transmission Date: 20250114
  Serious: Yes (Hospitalization, Other)
  Sender: UCB
  Company Number: US-UCBSA-2024039291

PATIENT
  Age: 44 Year
  Sex: Male

DRUGS (1)
  1. BIMEKIZUMAB [Suspect]
     Active Substance: BIMEKIZUMAB
     Indication: Psoriasis
     Dosage: 320 MILLIGRAM, EV 4 WEEKS
     Dates: start: 20240517

REACTIONS (6)
  - Staphylococcal infection [Recovered/Resolved]
  - Staphylococcal skin infection [Recovered/Resolved]
  - Exposure to toxic agent [Recovered/Resolved]
  - Immunodeficiency [Recovering/Resolving]
  - Abdominal discomfort [Recovered/Resolved]
  - Pharyngitis streptococcal [Recovering/Resolving]

NARRATIVE: CASE EVENT DATE: 20240501
